FAERS Safety Report 6034924-9 (Version None)
Quarter: 2009Q1

REPORT INFORMATION
  Report Type: 
  Country: None (occurrence: None)
  Receive Date: 20090108
  Receipt Date: 20090108
  Transmission Date: 20090719
  Serious: No
  Sender: FDA-Public Use
  Company Number: None

PATIENT
  Sex: Female
  Weight: 73.9363 kg

DRUGS (1)
  1. LAMOTRIGINE [Suspect]
     Indication: PARTIAL SEIZURES
     Dosage: 200 MG BID PO; 25 MG BID PO
     Route: 048
     Dates: start: 20080801, end: 20080826

REACTIONS (4)
  - DRUG HYPERSENSITIVITY [None]
  - PRODUCT QUALITY ISSUE [None]
  - PRURITUS [None]
  - URTICARIA [None]
